FAERS Safety Report 24003253 (Version 2)
Quarter: 2024Q4

REPORT INFORMATION
  Report Type: Spontaneous
  Country: US (occurrence: US)
  Receive Date: 20240624
  Receipt Date: 20241213
  Transmission Date: 20250115
  Serious: No
  Sender: SANOFI AVENTIS
  Company Number: US-SA-SAC20240620000392

PATIENT
  Sex: Male

DRUGS (2)
  1. DUPIXENT [Suspect]
     Active Substance: DUPILUMAB
     Indication: Nasal polyps
     Dosage: 300 MG, QOW
     Route: 058
     Dates: start: 202312
  2. DUPIXENT [Suspect]
     Active Substance: DUPILUMAB
     Dosage: 300 MG, QOW
     Route: 058
     Dates: start: 20240102

REACTIONS (7)
  - Dry skin [Unknown]
  - Eye symptom [Unknown]
  - Condition aggravated [Unknown]
  - Blepharitis [Unknown]
  - Hordeolum [Unknown]
  - Dry eye [Not Recovered/Not Resolved]
  - Therapeutic response decreased [Unknown]
